FAERS Safety Report 8207112-5 (Version None)
Quarter: 2012Q1

REPORT INFORMATION
  Report Type: 
  Country: None (occurrence: None)
  Receive Date: 20120312
  Receipt Date: 20120301
  Transmission Date: 20120608
  Serious: Yes (Congenital Anomaly, Other)
  Sender: FDA-Public Use
  Company Number: AUR-APL-2011-04320

PATIENT
  Sex: Female

DRUGS (4)
  1. ZIDOVUDINE [Suspect]
     Indication: HIV INFECTION
     Dosage: TRANSPLACENTAL
     Route: 064
  2. DIDANOSINE [Suspect]
     Indication: HIV INFECTION
     Dosage: (250 MG), TRANSPLACENTAL
     Route: 064
  3. STAVUDINE [Suspect]
     Indication: HIV INFECTION
     Dosage: 60 MG (60 MG, 1 IN 1 D), TRANSPLACENTAL
     Route: 064
  4. NELFINAVIR MESYLATE [Suspect]
     Indication: HIV INFECTION
     Dosage: (2500 MG), TRANSPLACENTAL
     Route: 064

REACTIONS (9)
  - CONGENITAL CYSTIC KIDNEY DISEASE [None]
  - NEUTROPENIA [None]
  - HYPERTRIGLYCERIDAEMIA [None]
  - CONNECTIVE TISSUE DISORDER [None]
  - MATERNAL DRUGS AFFECTING FOETUS [None]
  - ARTHROPATHY [None]
  - LACTIC ACIDOSIS [None]
  - LABORATORY TEST ABNORMAL [None]
  - BLOOD LACTATE DEHYDROGENASE INCREASED [None]
